FAERS Safety Report 10230765 (Version 2)
Quarter: 2014Q2

REPORT INFORMATION
  Report Type: Spontaneous
  Country: MX (occurrence: MX)
  Receive Date: 20140611
  Receipt Date: 20140627
  Transmission Date: 20141212
  Serious: Yes (Hospitalization)
  Sender: FDA-Public Use
  Company Number: MX-PFIZER INC-2014158553

PATIENT
  Age: 27 Year
  Sex: Male
  Weight: 70 kg

DRUGS (2)
  1. GENOTROPIN [Suspect]
     Indication: BODY HEIGHT DECREASED
     Dosage: 8 CLICKS PER DAY
     Route: 058
     Dates: start: 1998, end: 2001
  2. LEVOTHYROXIN [Suspect]
     Indication: HYPOTHYROIDISM
     Dosage: UNK
     Route: 048
     Dates: start: 1998

REACTIONS (3)
  - Encephalitis [Recovered/Resolved]
  - Nausea [Unknown]
  - Vomiting [Unknown]
